FAERS Safety Report 5957181-8 (Version None)
Quarter: 2008Q4

REPORT INFORMATION
  Report Type: 
  Country: None (occurrence: None)
  Receive Date: 20081118
  Receipt Date: 20081106
  Transmission Date: 20090506
  Serious: Yes (Hospitalization)
  Sender: FDA-Public Use
  Company Number: PE-ROCHE-593658

PATIENT
  Sex: Male

DRUGS (3)
  1. CAPECITABINE [Suspect]
     Indication: GASTRIC CANCER
     Dosage: DOSING: DAY 1-14, EVERY 3 WEEKS PATIENT RECEIVED 150 MG TABLETS OR 500 MG TABLETS.
     Route: 048
     Dates: start: 20080911, end: 20081023
  2. BLINDED BEVACIZUMAB [Suspect]
     Indication: GASTRIC CANCER
     Dosage: DOSAGE FORM: INFUSION. DOSE BLINDED.
     Route: 042
     Dates: start: 20080911, end: 20081023
  3. CISPLATIN [Suspect]
     Indication: GASTRIC CANCER
     Dosage: DOSE FORM: INFUSION
     Route: 042
     Dates: start: 20080911, end: 20081023

REACTIONS (2)
  - ABDOMINAL PAIN [None]
  - APPENDICITIS [None]
